FAERS Safety Report 4920980-5 (Version None)
Quarter: 2006Q1

REPORT INFORMATION
  Report Type: 
  Country: None (occurrence: None)
  Receive Date: 20060217
  Receipt Date: 20060209
  Transmission Date: 20060701
  Serious: Yes (Death)
  Sender: FDA-Public Use
  Company Number: TCI2006A00622

PATIENT
  Age: 72 Year
  Sex: Male

DRUGS (11)
  1. ACTOS [Suspect]
     Indication: DIABETES MELLITUS
     Dosage: PER ORAL
     Route: 048
     Dates: start: 20051212, end: 20060104
  2. DIAZEPAM [Concomitant]
  3. PREDNISOLONE [Concomitant]
  4. NORVASC [Concomitant]
  5. THEO-DUR [Concomitant]
  6. ENALAPRIL MALEATE [Concomitant]
  7. FAMOTIDINE [Concomitant]
  8. ASPIRIN [Concomitant]
  9. LAC B (LACTOBACILLUS BIFIDUS, LYOPHILIZED) [Concomitant]
  10. BERIZYM (PANCREATIC ENZYME COMBINED DRUG 1) (BERIZYM) [Concomitant]
  11. LEVOFLOXACIN [Concomitant]

REACTIONS (5)
  - DRUG INEFFECTIVE [None]
  - DUODENAL ULCER [None]
  - HEADACHE [None]
  - SHOCK [None]
  - SMALL INTESTINAL HAEMORRHAGE [None]
